FAERS Safety Report 10518278 (Version 1)
Quarter: 2014Q4

REPORT INFORMATION
  Report Type: Spontaneous
  Country: US (occurrence: None)
  Receive Date: 20141014
  Receipt Date: 20141014
  Transmission Date: 20150528
  Serious: Yes (Hospitalization)
  Sender: FDA-Public Use
  Company Number: None

PATIENT
  Sex: Male

DRUGS (1)
  1. RITUXIMAB [Suspect]
     Active Substance: RITUXIMAB
     Indication: ORGANISING PNEUMONIA
     Route: 042
     Dates: start: 20140508, end: 20140529

REACTIONS (5)
  - Febrile neutropenia [None]
  - Hypoxia [None]
  - Pneumonia [None]
  - Organising pneumonia [None]
  - Pulmonary oedema [None]

NARRATIVE: CASE EVENT DATE: 20140610
